FAERS Safety Report 5159634-1 (Version None)
Quarter: 2006Q4

REPORT INFORMATION
  Report Type: 
  Country: None (occurrence: None)
  Receive Date: 20061120
  Receipt Date: 20061107
  Transmission Date: 20070319
  Serious: Yes (Other)
  Sender: FDA-Public Use
  Company Number: 2006-07-0137

PATIENT
  Age: 68 Year
  Sex: Female

DRUGS (7)
  1. PEG-INTRON [Suspect]
     Indication: HEPATITIS C
     Dosage: 96 MCG; QW; SC
     Route: 058
     Dates: start: 20060619, end: 20060705
  2. REBETOL [Suspect]
     Indication: HEPATITIS C
     Dosage: SEE IMAGE
     Route: 048
     Dates: start: 20060619, end: 20060705
  3. ZOLOFT [Concomitant]
  4. LASIX [Concomitant]
  5. POTASSIUM ACETATE [Concomitant]
  6. NORVASC [Concomitant]
  7. DIOVAN [Concomitant]

REACTIONS (8)
  - DEHYDRATION [None]
  - FALL [None]
  - GASTROINTESTINAL DISORDER [None]
  - HEAD INJURY [None]
  - INCONTINENCE [None]
  - INFLUENZA LIKE ILLNESS [None]
  - SYNCOPE [None]
  - VOMITING [None]
